FAERS Safety Report 20105290 (Version 1)
Quarter: 2021Q4

REPORT INFORMATION
  Report Type: Spontaneous
  Country: US (occurrence: US)
  Receive Date: 20211124
  Receipt Date: 20211124
  Transmission Date: 20220303
  Serious: No
  Sender: FDA-Public Use
  Company Number: US-AUROBINDO-AUR-APL-2021-010267

PATIENT
  Age: 73 Year
  Sex: Female
  Weight: 50.8 kg

DRUGS (1)
  1. LOSARTAN POTASSIUM [Suspect]
     Active Substance: LOSARTAN POTASSIUM
     Indication: Hypertension
     Dosage: 2 DOSAGE FORM (TWO PILLS OF 25 MG), ONCE A DAY
     Route: 048

REACTIONS (1)
  - Alopecia [Not Recovered/Not Resolved]
